FAERS Safety Report 17413790 (Version 3)
Quarter: 2020Q1

REPORT INFORMATION
  Report Type: Report from Study
  Country: DE (occurrence: DE)
  Receive Date: 20200213
  Receipt Date: 20200310
  Transmission Date: 20200409
  Serious: No
  Sender: FDA-Public Use
  Company Number: DE-ROCHE-2544391

PATIENT
  Age: 69 Year
  Sex: Female

DRUGS (4)
  1. OCRELIZUMAB. [Suspect]
     Active Substance: OCRELIZUMAB
     Indication: MULTIPLE SCLEROSIS
     Route: 042
     Dates: start: 20190207, end: 20190207
  2. GODAMED [Concomitant]
     Active Substance: ASPIRIN
     Indication: THROMBOSIS
     Route: 048
     Dates: start: 19950101
  3. INTERFERON BETA 1B [Concomitant]
     Active Substance: INTERFERON BETA-1B
     Route: 065
     Dates: start: 20090603, end: 20180701
  4. OCRELIZUMAB. [Suspect]
     Active Substance: OCRELIZUMAB
     Indication: MULTIPLE SCLEROSIS
     Dosage: DATE OF MOST RECENT DOSE: 07/AUG/2018
     Route: 042
     Dates: start: 20180724

REACTIONS (1)
  - Candida infection [Unknown]

NARRATIVE: CASE EVENT DATE: 201902
